FAERS Safety Report 8579119-X (Version None)
Quarter: 2012Q3

REPORT INFORMATION
  Report Type: 
  Country: None (occurrence: None)
  Receive Date: 20120808
  Receipt Date: 20120731
  Transmission Date: 20120928
  Serious: Yes (Hospitalization)
  Sender: FDA-Public Use
  Company Number: JP-VERTEX PHARMACEUTICALS INC.-AE-2012-009780

PATIENT
  Age: 55 Year
  Sex: Female

DRUGS (16)
  1. TELAVIC (TELAPREVIR) [Suspect]
     Route: 048
     Dates: start: 20120630, end: 20120723
  2. CALBLOCK [Concomitant]
     Route: 048
  3. TELAVIC (TELAPREVIR) [Suspect]
     Route: 048
     Dates: start: 20120425, end: 20120508
  4. TELAVIC (TELAPREVIR) [Suspect]
     Route: 048
     Dates: start: 20120618, end: 20120622
  5. TELAVIC (TELAPREVIR) [Suspect]
     Route: 048
     Dates: start: 20120630, end: 20120723
  6. REBETOL [Concomitant]
     Route: 048
     Dates: start: 20120630, end: 20120722
  7. TELAVIC (TELAPREVIR) [Suspect]
     Route: 048
     Dates: start: 20120509, end: 20120529
  8. REBETOL [Concomitant]
     Route: 048
     Dates: start: 20120723
  9. TELAVIC (TELAPREVIR) [Suspect]
     Indication: HEPATITIS C
     Route: 048
     Dates: start: 20120417, end: 20120424
  10. PEG-INTRON [Concomitant]
     Route: 058
     Dates: start: 20120709
  11. REBETOL [Concomitant]
     Indication: HEPATITIS C
     Route: 048
     Dates: start: 20120417, end: 20120508
  12. REBETOL [Concomitant]
     Route: 048
     Dates: start: 20120509, end: 20120622
  13. PEG-INTRON [Concomitant]
     Route: 058
     Dates: end: 20120708
  14. TELAVIC (TELAPREVIR) [Suspect]
     Route: 048
     Dates: start: 20120530
  15. PEG-INTRON [Concomitant]
     Indication: HEPATITIS C
     Route: 058
     Dates: start: 20120417, end: 20120522
  16. PEG-INTRON [Concomitant]
     Route: 058
     Dates: start: 20120523

REACTIONS (1)
  - HYPOKALAEMIA [None]
